FAERS Safety Report 7141964-5 (Version None)
Quarter: 2010Q4

REPORT INFORMATION
  Report Type: 
  Country: None (occurrence: None)
  Receive Date: 20101207
  Receipt Date: 20101123
  Transmission Date: 20110411
  Serious: Yes (Hospitalization)
  Sender: FDA-Public Use
  Company Number: A0793839A

PATIENT
  Age: 53 Year
  Sex: Male

DRUGS (3)
  1. AVANDIA [Suspect]
     Dosage: 8MG PER DAY
     Route: 048
     Dates: start: 20010101, end: 20031001
  2. AMARYL [Concomitant]
  3. VOLMAX [Concomitant]

REACTIONS (6)
  - CARDIAC DISORDER [None]
  - CARDIAC FAILURE CONGESTIVE [None]
  - CARDIOMYOPATHY [None]
  - CORONARY ARTERY OCCLUSION [None]
  - ISCHAEMIC CARDIOMYOPATHY [None]
  - RENAL FAILURE CHRONIC [None]
